FAERS Safety Report 9951052 (Version 2)
Quarter: 2014Q1

REPORT INFORMATION
  Report Type: Spontaneous
  Country: US (occurrence: US)
  Receive Date: 20140304
  Receipt Date: 20140304
  Transmission Date: 20141002
  Serious: Yes (Other)
  Sender: FDA-Public Use
  Company Number: US-SA-FABR-1003397

PATIENT
  Age: 64 Year
  Sex: Female

DRUGS (5)
  1. FABRAZYME [Suspect]
     Indication: FABRY^S DISEASE
     Dosage: FIRST SHIP DATE WAS 28-NOV-2007
     Route: 042
  2. FABRAZYME [Suspect]
     Indication: FABRY^S DISEASE
     Dosage: FIRST SHIP DATE WAS 28-NOV-2007
     Route: 042
  3. FABRAZYME [Suspect]
     Indication: FABRY^S DISEASE
     Dosage: FIRST SHIP DATE WAS 28-NOV-2007
     Route: 042
  4. DIPHENHYDRAMINE [Concomitant]
     Indication: PREMEDICATION
     Dosage: UNK
     Route: 065
  5. PARACETAMOL [Concomitant]
     Indication: PREMEDICATION
     Dosage: UNK
     Route: 065

REACTIONS (1)
  - Arthritis [Unknown]
